FAERS Safety Report 8203676-6 (Version None)
Quarter: 2012Q1

REPORT INFORMATION
  Report Type: 
  Country: None (occurrence: None)
  Receive Date: 20120308
  Receipt Date: 20120227
  Transmission Date: 20120608
  Serious: Yes (Hospitalization)
  Sender: FDA-Public Use
  Company Number: KAD201202-000165

PATIENT
  Age: 56 Year
  Sex: Female
  Weight: 60.3284 kg

DRUGS (3)
  1. RIBAVIRIN [Suspect]
     Indication: HEPATITIS C
     Dosage: 600 MG, ONE TABLET  DAILY, ORAL
     Route: 048
     Dates: start: 20120103, end: 20120209
  2. PEGASYS [Suspect]
     Indication: HEPATITIS C
     Dosage: 180 UG, ONCE A WEEK, SUBCUTANEOUS
     Route: 058
     Dates: start: 20120103, end: 20120209
  3. VICTRELIS [Suspect]
     Indication: HEPATITIS C
     Dosage: 200 MG, THREE TIMES A DAY, ORAL
     Route: 048
     Dates: start: 20120103, end: 20120209

REACTIONS (1)
  - HEPATIC FAILURE [None]
